FAERS Safety Report 25450538 (Version 1)
Quarter: 2025Q2

REPORT INFORMATION
  Report Type: Spontaneous
  Country: US (occurrence: US)
  Receive Date: 20250618
  Receipt Date: 20250618
  Transmission Date: 20250716
  Serious: Yes (Hospitalization)
  Sender: SANOFI AVENTIS
  Company Number: US-SA-2025SA170498

PATIENT
  Age: 57 Year
  Sex: Male

DRUGS (12)
  1. REZUROCK [Suspect]
     Active Substance: BELUMOSUDIL
     Indication: Acute myeloid leukaemia
     Dosage: 200 MG, BID
     Route: 048
  2. TRAZODONE [Concomitant]
     Active Substance: TRAZODONE HYDROCHLORIDE
  3. LOPERAMIDE [Concomitant]
     Active Substance: LOPERAMIDE
  4. TRIAMCINOLONE [Concomitant]
     Active Substance: TRIAMCINOLONE
  5. MAG AL PLUS [Concomitant]
     Active Substance: ALUMINUM HYDROXIDE\DIMETHICONE\MAGNESIUM HYDROXIDE
  6. ACYCLOVIR [Concomitant]
     Active Substance: ACYCLOVIR
  7. ERGOCALCIFEROL [Concomitant]
     Active Substance: ERGOCALCIFEROL
  8. BECLOMETHASONE [Concomitant]
     Active Substance: BECLOMETHASONE
  9. TACROLIMUS [Concomitant]
     Active Substance: TACROLIMUS
  10. BACTRIM DS [Concomitant]
     Active Substance: SULFAMETHOXAZOLE\TRIMETHOPRIM
  11. OMEPRAZOLE [Concomitant]
     Active Substance: OMEPRAZOLE
  12. FML [Concomitant]
     Active Substance: FLUOROMETHOLONE

REACTIONS (2)
  - Cardiac disorder [Not Recovered/Not Resolved]
  - Product use in unapproved indication [Unknown]
